FAERS Safety Report 22956366 (Version 2)
Quarter: 2023Q4

REPORT INFORMATION
  Report Type: Spontaneous
  Country: IT (occurrence: IT)
  Receive Date: 20230919
  Receipt Date: 20231020
  Transmission Date: 20240110
  Serious: Yes (Hospitalization, Other)
  Sender: FDA-Public Use
  Company Number: IT-AMGEN-ITASP2023153633

PATIENT
  Age: 49 Year
  Sex: Female

DRUGS (20)
  1. OXALIPLATIN [Suspect]
     Active Substance: OXALIPLATIN
     Indication: Colorectal cancer
     Dosage: 135 MILLIGRAM
     Route: 042
     Dates: start: 202106
  2. OXALIPLATIN [Suspect]
     Active Substance: OXALIPLATIN
     Dosage: 110 MILLIGRAM 20% REDUCTION
     Route: 042
     Dates: start: 202204
  3. IRINOTECAN [Suspect]
     Active Substance: IRINOTECAN
     Indication: Colorectal cancer
     Dosage: 280 MILLIGRAM OVER 1 H
     Route: 042
  4. IRINOTECAN [Suspect]
     Active Substance: IRINOTECAN
     Dosage: UNK
     Route: 042
     Dates: start: 202208
  5. FLUOROURACIL [Suspect]
     Active Substance: FLUOROURACIL
     Indication: Colorectal cancer
     Dosage: 600 MILLIGRAM  + 4,000 MG IV
     Route: 042
     Dates: start: 202106
  6. FLUOROURACIL [Suspect]
     Active Substance: FLUOROURACIL
     Indication: Rectal adenocarcinoma
     Dosage: 500 MILLIGRAM (20% REDUCTION) 2,800 MG (30% REDUCTION) IV INFUSION FOR 48 H,
     Route: 042
     Dates: start: 202204
  7. FLUOROURACIL [Suspect]
     Active Substance: FLUOROURACIL
     Dosage: UNK
     Route: 042
     Dates: start: 202208
  8. LEUCOVORIN [Suspect]
     Active Substance: LEUCOVORIN\LEUCOVORIN CALCIUM
     Indication: Colorectal cancer
     Dosage: 300 MILLIGRAM OVER 2 H
     Route: 042
     Dates: start: 202106
  9. LEUCOVORIN [Suspect]
     Active Substance: LEUCOVORIN\LEUCOVORIN CALCIUM
     Dosage: UNK
     Route: 042
     Dates: start: 202208
  10. BEVACIZUMAB [Suspect]
     Active Substance: BEVACIZUMAB
     Indication: Colorectal cancer
     Dosage: 270 MILLIGRAM
     Route: 042
     Dates: start: 2022, end: 2022
  11. BEVACIZUMAB [Suspect]
     Active Substance: BEVACIZUMAB
     Indication: Rectal adenocarcinoma
  12. PANITUMUMAB [Suspect]
     Active Substance: PANITUMUMAB
     Indication: Colorectal cancer
     Dosage: 320 MILLIGRAM
     Route: 042
     Dates: start: 202106
  13. PANITUMUMAB [Suspect]
     Active Substance: PANITUMUMAB
     Indication: Rectal adenocarcinoma
     Dosage: 320 MILLIGRAM
     Route: 042
     Dates: start: 202203
  14. PANITUMUMAB [Suspect]
     Active Substance: PANITUMUMAB
     Dosage: 320 MILLIGRAM
     Route: 042
     Dates: start: 202204, end: 2022
  15. LEUCOVORIN CALCIUM [Suspect]
     Active Substance: LEUCOVORIN CALCIUM
     Indication: Rectal adenocarcinoma
     Dosage: 300 MILLIGRAM
     Route: 041
     Dates: start: 202106
  16. LEUCOVORIN CALCIUM [Suspect]
     Active Substance: LEUCOVORIN CALCIUM
     Dosage: UNK
     Route: 065
     Dates: start: 2018, end: 2020
  17. OXALIPLATIN [Suspect]
     Active Substance: OXALIPLATIN
     Indication: Rectal adenocarcinoma
     Dosage: 135 MILLIGRAM
     Route: 041
     Dates: start: 202106
  18. OXALIPLATIN [Suspect]
     Active Substance: OXALIPLATIN
     Dosage: 110 MILLIGRAM
     Route: 041
     Dates: start: 202204
  19. TIPIRACIL HYDROCHLORIDE\TRIFLURIDINE [Concomitant]
     Active Substance: TIPIRACIL HYDROCHLORIDE\TRIFLURIDINE
     Indication: Product used for unknown indication
     Dosage: UNK 110/45 MG QD
     Route: 048
     Dates: start: 202209
  20. CAPECITABINE [Concomitant]
     Active Substance: CAPECITABINE
     Indication: Rectal adenocarcinoma
     Dosage: UNK
     Route: 065

REACTIONS (6)
  - Thrombocytopenic purpura [Recovered/Resolved]
  - Colorectal cancer [Unknown]
  - Antinuclear antibody positive [Unknown]
  - Chills [Unknown]
  - Blood immunoglobulin G increased [Unknown]
  - Back pain [Unknown]

NARRATIVE: CASE EVENT DATE: 20220101
